FAERS Safety Report 23479138 (Version 5)
Quarter: 2024Q3

REPORT INFORMATION
  Report Type: Spontaneous
  Country: JP (occurrence: JP)
  Receive Date: 20240205
  Receipt Date: 20240705
  Transmission Date: 20241017
  Serious: Yes (Other)
  Sender: BRISTOL MYERS SQUIBB
  Company Number: JP-BRISTOL-MYERS SQUIBB COMPANY-2024-014953

PATIENT
  Age: 7 Decade
  Sex: Male

DRUGS (2)
  1. YERVOY [Suspect]
     Active Substance: IPILIMUMAB
     Indication: Malignant melanoma
     Dosage: 2 COURSES
     Route: 041
     Dates: start: 20240109, end: 20240205
  2. OPDIVO [Suspect]
     Active Substance: NIVOLUMAB
     Indication: Malignant melanoma
     Dosage: 2 COURSES
     Route: 041
     Dates: start: 20240109, end: 20240205

REACTIONS (5)
  - Facial paralysis [Recovered/Resolved]
  - Pain [Recovered/Resolved]
  - Blood creatine phosphokinase increased [Unknown]
  - Oedema peripheral [Recovered/Resolved]
  - Motor dysfunction [Recovered/Resolved]

NARRATIVE: CASE EVENT DATE: 20240101
